FAERS Safety Report 9690958 (Version 1)
Quarter: 2013Q4

REPORT INFORMATION
  Report Type: Spontaneous
  Country: US (occurrence: None)
  Receive Date: 20131114
  Receipt Date: 20131114
  Transmission Date: 20140711
  Serious: Yes (Death)
  Sender: FDA-Public Use
  Company Number: None

PATIENT
  Age: 78 Year
  Sex: Female
  Weight: 93.8 kg

DRUGS (1)
  1. WARFARIN 4 MG [Suspect]
     Indication: THROMBOSIS
     Dosage: 5MG ONE DAY/WEEK, 4MG ALL OTHER
     Route: 048

REACTIONS (6)
  - Nausea [None]
  - Vomiting [None]
  - Lethargy [None]
  - Intraventricular haemorrhage [None]
  - Brain midline shift [None]
  - Hypertension [None]
